FAERS Safety Report 9241437 (Version 3)
Quarter: 2013Q3

REPORT INFORMATION
  Report Type: Spontaneous
  Country: US (occurrence: US)
  Receive Date: 20130418
  Receipt Date: 20130710
  Transmission Date: 20140515
  Serious: Yes (Hospitalization)
  Sender: FDA-Public Use
  Company Number: US-AMGEN-USASP2013026558

PATIENT
  Age: 43 Year
  Sex: Male
  Weight: 83.9 kg

DRUGS (2)
  1. ENBREL [Suspect]
     Indication: RHEUMATOID ARTHRITIS
     Dosage: 50 MG, QWK
     Route: 058
     Dates: start: 20050405
  2. MTX                                /00113801/ [Concomitant]
     Indication: ANKYLOSING SPONDYLITIS
     Dosage: 15 G, QWK
     Route: 048

REACTIONS (5)
  - Diverticulitis [Recovering/Resolving]
  - Hip arthroplasty [Recovered/Resolved]
  - Knee arthroplasty [Recovered/Resolved]
  - Cataract [Recovered/Resolved]
  - Joint swelling [Not Recovered/Not Resolved]
